FAERS Safety Report 12456414 (Version 2)
Quarter: 2016Q3

REPORT INFORMATION
  Report Type: Report from Study
  Country: JP (occurrence: JP)
  Receive Date: 20160610
  Receipt Date: 20160719
  Transmission Date: 20161109
  Serious: Yes (Hospitalization)
  Sender: FDA-Public Use
  Company Number: JP-UCBSA-2016020682

PATIENT
  Age: 7 Year
  Sex: Male
  Weight: 11 kg

DRUGS (2)
  1. LEVETIRACETAM. [Suspect]
     Active Substance: LEVETIRACETAM
     Indication: SIMPLE PARTIAL SEIZURES
     Dosage: 500 MG, 2X/DAY (BID)
     Route: 048
     Dates: start: 20151120, end: 20160408
  2. SELENICA-R [Concomitant]
     Active Substance: VALPROATE SODIUM
     Indication: SIMPLE PARTIAL SEIZURES
     Dosage: 280 MG, DAILY
     Route: 042

REACTIONS (1)
  - Talipes [Recovered/Resolved]

NARRATIVE: CASE EVENT DATE: 20160223
